FAERS Safety Report 22377036 (Version 1)
Quarter: 2023Q2

REPORT INFORMATION
  Report Type: Spontaneous
  Country: FR (occurrence: FR)
  Receive Date: 20230529
  Receipt Date: 20230529
  Transmission Date: 20230722
  Serious: Yes (Hospitalization)
  Sender: FDA-Public Use
  Company Number: FR-AFSSAPS-PO2023000542

PATIENT
  Age: 71 Year
  Sex: Female
  Weight: 44 kg

DRUGS (6)
  1. IPRATROPIUM [Suspect]
     Active Substance: IPRATROPIUM
     Indication: Chronic obstructive pulmonary disease
     Dosage: 1 DOSAGE FORM, TWO TIMES A DAY
  2. TERBUTALINE [Suspect]
     Active Substance: TERBUTALINE
     Indication: Chronic obstructive pulmonary disease
     Dosage: 1 DOSAGE FORM, TWO TIMES A DAY
  3. ATROPINE [Suspect]
     Active Substance: ATROPINE
     Indication: Scan myocardial perfusion
     Dosage: 0.25 MILLIGRAM
     Route: 042
     Dates: start: 20230330, end: 20230330
  4. DOBUTAMINE HYDROCHLORIDE [Suspect]
     Active Substance: DOBUTAMINE HYDROCHLORIDE
     Indication: Scan myocardial perfusion
     Dosage: 10 MICROGRAM/KILOGRAM, 1 MINUTE (THEN 20?G/KG/MIN)
     Route: 042
     Dates: start: 20230330, end: 20230330
  5. INCRUSE ELLIPTA [Suspect]
     Active Substance: UMECLIDINIUM BROMIDE
     Indication: Chronic obstructive pulmonary disease
     Dosage: 1 DOSAGE FORM, TWO TIMES A DAY
  6. FLUTICASONE FUROATE\VILANTEROL TRIFENATATE [Suspect]
     Active Substance: FLUTICASONE FUROATE\VILANTEROL TRIFENATATE
     Indication: Chronic obstructive pulmonary disease
     Dosage: 1 DOSAGE FORM, TWO TIMES A DAY

REACTIONS (1)
  - Stress cardiomyopathy [Recovered/Resolved]

NARRATIVE: CASE EVENT DATE: 20230330
